FAERS Safety Report 9203140 (Version 1)
Quarter: 2013Q1

REPORT INFORMATION
  Report Type: Spontaneous
  Country: US (occurrence: None)
  Receive Date: 20120709
  Receipt Date: 20120709
  Transmission Date: 20140127
  Serious: Yes (Other)
  Sender: FDA-Public Use
  Company Number: PHEH2011US012674

PATIENT
  Age: 74 Year
  Sex: Female

DRUGS (21)
  1. GLEEVEC (IMATINIB) [Suspect]
     Indication: LEUKAEMIA
     Route: 048
  2. EDECRIN [Suspect]
  3. ACTONEL (RISEDRONATW SODIUM) [Concomitant]
  4. ATENOLOL (ATENOLOL) [Concomitant]
  5. SPIRONOLACTONE (SPIRONOLCATONE) [Concomitant]
  6. PANTOPRAZOLE (PANTOPRAZOLE) [Concomitant]
  7. PREDNISONE (PREDISONE) [Concomitant]
  8. TRIMETHOPRIM(TRIMETHOPRIM) [Concomitant]
  9. PREMARIN/ NEZ/ (ESTROGENS CONJUGATED) [Concomitant]
  10. LYRICA (PREGAMBALIN) [Concomitant]
  11. VITAMIN D (ERGOCALCIFEROL) [Concomitant]
  12. OCUVITE/01053801/ (ASCORBIC ACID,RETINOL, TOCOPHEROL)) [Concomitant]
  13. VITAMIN C [Concomitant]
  14. LORAZEPAM (LORAZEPAM) [Concomitant]
  15. OXYCODONE (OXYCODONE) [Concomitant]
  16. CENTRUM (MINERALS NOS, VITAMINS NOS) [Concomitant]
  17. ACIDOPHILUS ^ZYMA^ (LACTOBACILLUSACIDOPHILLUS) [Concomitant]
  18. TRIAMCINOLONE (TRIAMCINOLONE) [Concomitant]
  19. SYSTANE (PROPYLENE GLYCOL/MACROGOL) (MACROGOL, PROPYLENE GLYCOL) [Concomitant]
  20. MURO 128(SODIUM CHLORIDE) [Concomitant]
  21. RESTASIS (CICLOSPORIN) [Concomitant]

REACTIONS (3)
  - Pulmonary hypertension [None]
  - Muscle spasms [None]
  - Dyspnoea [None]
